FAERS Safety Report 8174117-2 (Version None)
Quarter: 2012Q1

REPORT INFORMATION
  Report Type: 
  Country: None (occurrence: None)
  Receive Date: 20120224
  Receipt Date: 20120214
  Transmission Date: 20120608
  Serious: Yes (Other)
  Sender: FDA-Public Use
  Company Number: GB-1190228

PATIENT
  Age: 84 Year
  Sex: Female
  Weight: 51.2 kg

DRUGS (9)
  1. CILOXAN [Suspect]
     Dosage: (OPHTHALMIC)
     Route: 047
     Dates: start: 20120120
  2. NIFEDIPINE [Concomitant]
  3. VENTOLIN [Concomitant]
  4. ACETAMINOPHEN AND CODEINE PHOSPHATE [Concomitant]
  5. NITRAZEPAM [Concomitant]
  6. CARBOCISTEINE [Concomitant]
  7. SIMVASTATIN [Concomitant]
  8. ADCAL [Concomitant]
  9. PHYLLOCONTIN [Concomitant]

REACTIONS (1)
  - ARTHRALGIA [None]
